FAERS Safety Report 6192468-8 (Version None)
Quarter: 2009Q2

REPORT INFORMATION
  Report Type: 
  Country: None (occurrence: None)
  Receive Date: 20090514
  Receipt Date: 20090514
  Transmission Date: 20091009
  Serious: Yes (Other)
  Sender: FDA-Public Use
  Company Number: None

PATIENT
  Sex: Female
  Weight: 13.6079 kg

DRUGS (2)
  1. VANTIN [Suspect]
     Indication: OTITIS MEDIA
     Dosage: 1 TSP. BID PO
     Route: 048
     Dates: start: 20000826, end: 20001005
  2. VANTIN [Suspect]
     Indication: OTORRHOEA
     Dosage: 1 TSP. BID PO
     Route: 048
     Dates: start: 20000826, end: 20001005

REACTIONS (1)
  - NO THERAPEUTIC RESPONSE [None]
